FAERS Safety Report 16190609 (Version 2)
Quarter: 2019Q2

REPORT INFORMATION
  Report Type: Spontaneous
  Country: JP (occurrence: JP)
  Receive Date: 20190412
  Receipt Date: 20190424
  Transmission Date: 20190711
  Serious: Yes (Hospitalization, Disabling, Other)
  Sender: FDA-Public Use
  Company Number: JP-PFIZER INC-2019147923

PATIENT
  Sex: Female
  Weight: 48 kg

DRUGS (9)
  1. AMLODIPINE [Concomitant]
     Active Substance: AMLODIPINE BESYLATE
     Dosage: 2 TABLETS, UNK
  2. CORTRIL [Suspect]
     Active Substance: HYDROCORTISONE
     Indication: ADRENAL INSUFFICIENCY
     Dosage: 20 MG (15 MG AND 5 MG), DAILY
     Route: 048
  3. TEMODAL [Suspect]
     Active Substance: TEMOZOLOMIDE
     Indication: PANCREATIC NEUROENDOCRINE TUMOUR
     Dosage: 220 MG, DAILY
     Route: 048
     Dates: start: 20161026, end: 20170118
  4. AMITIZA [Concomitant]
     Active Substance: LUBIPROSTONE
     Dosage: 2 CAP, UNK
  5. NEXIUM [Concomitant]
     Active Substance: ESOMEPRAZOLE MAGNESIUM
     Dosage: 1 TABLET, UNK
  6. URSODEOXYCHOLIC ACID [Concomitant]
     Active Substance: URSODIOL
     Dosage: 3 TABLETS, UNK
  7. POLAPREZINC [Concomitant]
     Active Substance: POLAPREZINC
     Dosage: 2 TABLETS, UNK
  8. XELODA [Suspect]
     Active Substance: CAPECITABINE
     Indication: PANCREATIC NEUROENDOCRINE TUMOUR
     Dosage: 1200 MG, 2X/DAY
     Route: 048
     Dates: start: 20161026, end: 20170212
  9. CALONAL [Concomitant]
     Active Substance: ACETAMINOPHEN
     Dosage: 6 TABLETS, UNK

REACTIONS (2)
  - Meningitis cryptococcal [Recovering/Resolving]
  - Off label use [Unknown]

NARRATIVE: CASE EVENT DATE: 20170220
